FAERS Safety Report 7559263-6 (Version None)
Quarter: 2011Q2

REPORT INFORMATION
  Report Type: 
  Country: None (occurrence: None)
  Receive Date: 20110613
  Receipt Date: 20110603
  Transmission Date: 20111010
  Serious: Yes (Other)
  Sender: FDA-Public Use
  Company Number: DKLU1071199

PATIENT
  Age: 9 Year
  Sex: Female

DRUGS (5)
  1. LAMICTAL [Concomitant]
  2. SABRIL [Suspect]
     Indication: INFANTILE SPASMS
     Dosage: 500 MG MILLIGRAM(S), 2 IN 1 D, ORAL
     Route: 048
  3. KLONOPIN [Concomitant]
  4. KEPPRA [Concomitant]
  5. BANZEL (RUFINAMIDE) [Concomitant]

REACTIONS (2)
  - BLINDNESS [None]
  - RETINAL TOXICITY [None]
